FAERS Safety Report 9292934 (Version 3)
Quarter: 2013Q4

REPORT INFORMATION
  Report Type: Spontaneous
  Country: US (occurrence: None)
  Receive Date: 20130513
  Receipt Date: 20131105
  Transmission Date: 20140711
  Serious: Yes (Life-Threatening, Other)
  Sender: FDA-Public Use
  Company Number: AXC-2013-000208

PATIENT
  Age: 23 Year
  Sex: Female
  Weight: 54.4 kg

DRUGS (3)
  1. SUCRALFATE [Suspect]
     Indication: ABDOMINAL PAIN
     Route: 048
     Dates: start: 20130404, end: 20130404
  2. SUCRALFATE [Suspect]
     Route: 048
  3. DEXILANT (DEXLANSOPRAZOLE) [Concomitant]

REACTIONS (8)
  - Choking [None]
  - Foreign body [None]
  - Depressed level of consciousness [None]
  - Dysphagia [None]
  - Fear [None]
  - Anxiety [None]
  - Basedow^s disease [None]
  - Malaise [None]
